FAERS Safety Report 7361901-8 (Version None)
Quarter: 2011Q1

REPORT INFORMATION
  Report Type: 
  Country: None (occurrence: None)
  Receive Date: 20110318
  Receipt Date: 20110316
  Transmission Date: 20110831
  Serious: Yes (Hospitalization)
  Sender: FDA-Public Use
  Company Number: NL-BRISTOL-MYERS SQUIBB COMPANY-15386469

PATIENT
  Age: 70 Year
  Sex: Male

DRUGS (10)
  1. HYDROCHLOROTHIAZIDE [Concomitant]
  2. VALSARTAN [Concomitant]
  3. CISPLATIN [Suspect]
     Indication: NON-SMALL CELL LUNG CANCER
     Dosage: CUMULATIVE DOSE:264MG 27SEP10-28OCT10(31D) UNTIL 5NOV10,MOST RECENT ON 28OCT10
     Route: 042
     Dates: start: 20100927, end: 20101028
  4. MAALOX [Concomitant]
     Dates: start: 20101001
  5. TRAMADOL HCL [Concomitant]
  6. PANTOZOL [Concomitant]
     Dates: start: 20101008
  7. ENALAPRIL [Concomitant]
  8. CETUXIMAB [Suspect]
     Indication: NON-SMALL CELL LUNG CANCER
     Dosage: CUMULATIVE DOSE:3102MG UNTIL 5NOV10, MOST RECENT DOSE ON 25OCT10.
     Route: 042
     Dates: start: 20100921, end: 20101025
  9. AMLODIPINE [Concomitant]
  10. SUCRALFATE [Concomitant]
     Dates: start: 20101008

REACTIONS (1)
  - DYSPHAGIA [None]
